FAERS Safety Report 8071917-4 (Version None)
Quarter: 2012Q1

REPORT INFORMATION
  Report Type: 
  Country: None (occurrence: None)
  Receive Date: 20120119
  Receipt Date: 20120112
  Transmission Date: 20120608
  Serious: Yes (Congenital Anomaly)
  Sender: FDA-Public Use
  Company Number: 128585

PATIENT
  Sex: Female

DRUGS (2)
  1. LACROIX I [Concomitant]
  2. BUPRENORPHINE HCL [Suspect]
     Indication: DRUG DEPENDENCE
     Dosage: MEAN DOSE OF 6.3 TO 5.3 MG/DAY AT START OF

REACTIONS (17)
  - FOETAL DEATH [None]
  - FOETAL MALFORMATION [None]
  - NECROSIS [None]
  - CHONDRODYSTROPHY [None]
  - URINARY TRACT MALFORMATION [None]
  - GASTROSCHISIS [None]
  - MATERNAL EXPOSURE DURING PREGNANCY [None]
  - CONGENITAL NOSE MALFORMATION [None]
  - PRE-ECLAMPSIA [None]
  - MATERNAL DRUGS AFFECTING FOETUS [None]
  - ABORTION INDUCED [None]
  - APPENDIX DISORDER [None]
  - MICROCEPHALY [None]
  - SPINE MALFORMATION [None]
  - CONGENITAL GENITAL MALFORMATION [None]
  - DYSMORPHISM [None]
  - LIMB MALFORMATION [None]
